APPROVED DRUG PRODUCT: ZEPZELCA
Active Ingredient: LURBINECTEDIN
Strength: 4MG/VIAL
Dosage Form/Route: POWDER;INTRAVENOUS
Application: N213702 | Product #001
Applicant: JAZZ PHARMACEUTICALS IRELAND LTD
Approved: Jun 15, 2020 | RLD: Yes | RS: Yes | Type: RX

PATENTS:
Patent 12324806 | Expires: May 29, 2040
Patent 12433890 | Expires: May 29, 2040
Patent 7763615 | Expires: Dec 13, 2029
Patent 12440490 | Expires: May 29, 2040
Patent 7763615 | Expires: Dec 13, 2029

EXCLUSIVITY:
Code: I-977 | Date: Oct 2, 2028
Code: ODE-304 | Date: Jun 15, 2027